FAERS Safety Report 9461243 (Version 1)
Quarter: 2013Q3

REPORT INFORMATION
  Report Type: Spontaneous
  Country: US (occurrence: US)
  Receive Date: 20130816
  Receipt Date: 20130816
  Transmission Date: 20140515
  Serious: No
  Sender: FDA-Public Use
  Company Number: US-PFIZER INC-2013237297

PATIENT
  Age: 28 Year
  Sex: Female
  Weight: 65.8 kg

DRUGS (10)
  1. LYRICA [Suspect]
     Indication: FIBROMYALGIA
     Dosage: UNK, 1X/DAY
     Route: 048
     Dates: start: 2009
  2. LYRICA [Suspect]
     Dosage: UNK, 3X/DAY
     Route: 048
  3. LYRICA [Suspect]
     Dosage: UNK
     Route: 048
     Dates: end: 2012
  4. LYRICA [Suspect]
     Dosage: 225 MG, 1X/DAY
     Route: 048
     Dates: start: 2012
  5. SAVELLA [Suspect]
     Dosage: UNK
  6. NEXIUM [Concomitant]
     Indication: GASTROOESOPHAGEAL REFLUX DISEASE
     Dosage: UNK
  7. NALTREXONE [Concomitant]
     Dosage: UNK
  8. VICODIN [Concomitant]
     Dosage: UNK
  9. LEXAPRO [Concomitant]
     Indication: DEPRESSION
     Dosage: UNK
  10. SPRINTEC [Concomitant]
     Dosage: UNK

REACTIONS (2)
  - Drug ineffective [Unknown]
  - Hypersomnia [Not Recovered/Not Resolved]
